FAERS Safety Report 7849274-5 (Version None)
Quarter: 2011Q4

REPORT INFORMATION
  Report Type: 
  Country: None (occurrence: None)
  Receive Date: 20111021
  Receipt Date: 20111011
  Transmission Date: 20120403
  Serious: Yes (Other)
  Sender: FDA-Public Use
  Company Number: 2011MA014980

PATIENT
  Age: 71 Year
  Sex: Female

DRUGS (13)
  1. LORAZEPAM [Suspect]
     Indication: PRODUCT USED FOR UNKNOWN INDICATION
  2. METOLAZONE [Suspect]
  3. POTASSIUM CHLORIDE [Suspect]
     Indication: PRODUCT USED FOR UNKNOWN INDICATION
  4. FOLIC ACID [Suspect]
     Indication: PRODUCT USED FOR UNKNOWN INDICATION
  5. DILTIAZEM HCL [Suspect]
     Indication: PRODUCT USED FOR UNKNOWN INDICATION
  6. BUMETANIDE [Suspect]
     Indication: PRODUCT USED FOR UNKNOWN INDICATION
  7. SPIRONOLACTONE [Suspect]
     Indication: PRODUCT USED FOR UNKNOWN INDICATION
  8. CETIRIZINE HCL [Suspect]
     Indication: PRODUCT USED FOR UNKNOWN INDICATION
  9. TIKOSYN [Suspect]
     Indication: ATRIAL FIBRILLATION
  10. LATANOPROST [Suspect]
     Indication: PRODUCT USED FOR UNKNOWN INDICATION
  11. METOPROLOL SUCCINATE [Suspect]
     Indication: PRODUCT USED FOR UNKNOWN INDICATION
  12. SIMVASTATIN [Suspect]
     Indication: PRODUCT USED FOR UNKNOWN INDICATION
  13. WARFARIN SODIUM [Suspect]
     Indication: PRODUCT USED FOR UNKNOWN INDICATION

REACTIONS (12)
  - BLOOD ELECTROLYTES ABNORMAL [None]
  - DYSPNOEA [None]
  - EYE OEDEMA [None]
  - DRUG INTERACTION [None]
  - MALAISE [None]
  - NASAL DISORDER [None]
  - VISUAL IMPAIRMENT [None]
  - BLOOD CREATININE INCREASED [None]
  - MENTAL IMPAIRMENT [None]
  - OEDEMA [None]
  - VENTRICULAR EXTRASYSTOLES [None]
  - DIARRHOEA [None]
